FAERS Safety Report 17495246 (Version 1)
Quarter: 2020Q1

REPORT INFORMATION
  Report Type: Spontaneous
  Country: US (occurrence: US)
  Receive Date: 20200304
  Receipt Date: 20200304
  Transmission Date: 20200409
  Serious: Yes (Other)
  Sender: FDA-Public Use
  Company Number: NVSC2020US060293

PATIENT
  Sex: Female

DRUGS (1)
  1. LORAZEPAM. [Suspect]
     Active Substance: LORAZEPAM
     Indication: ANXIETY
     Dosage: UNK
     Route: 048
     Dates: start: 2011

REACTIONS (9)
  - Pneumonia [Unknown]
  - Migraine [Unknown]
  - Vitamin D deficiency [Unknown]
  - Depression [Unknown]
  - Fatigue [Unknown]
  - Rhinitis allergic [Unknown]
  - Dry eye [Unknown]
  - Chest pain [Unknown]
  - Insomnia [Unknown]
